FAERS Safety Report 7606768-5 (Version None)
Quarter: 2011Q3

REPORT INFORMATION
  Report Type: 
  Country: None (occurrence: None)
  Receive Date: 20110713
  Receipt Date: 20110707
  Transmission Date: 20111222
  Serious: Yes (Other)
  Sender: FDA-Public Use
  Company Number: BR-PFIZER INC-2011153802

PATIENT
  Age: 43 Year
  Sex: Female

DRUGS (5)
  1. LIORAM [Suspect]
     Indication: SLEEP DISORDER
     Dosage: UNK
     Dates: start: 20110614
  2. CLONAZEPAM [Concomitant]
     Indication: ANXIETY
     Dosage: UNK
     Dates: start: 20070101
  3. VARENICLINE TARTRATE [Suspect]
     Indication: TOBACCO USER
     Dosage: ONE TABLET DAILY
     Route: 048
     Dates: start: 20110612, end: 20110101
  4. VARENICLINE TARTRATE [Suspect]
     Dosage: TWO TABLETS DAILY
     Dates: start: 20110101
  5. CLONAZEPAM [Concomitant]
     Indication: INSOMNIA

REACTIONS (2)
  - HYPOTENSION [None]
  - CHEST PAIN [None]
